FAERS Safety Report 8452015 (Version 2)
Quarter: 2013Q2

REPORT INFORMATION
  Report Type: Spontaneous
  Country: GB (occurrence: GB)
  Receive Date: 20120309
  Receipt Date: 20130426
  Transmission Date: 20140414
  Serious: Yes (Other)
  Sender: FDA-Public Use
  Company Number: GB-NOVOPROD-345460

PATIENT
  Age: 55 Year
  Sex: Male

DRUGS (2)
  1. NOVOMIX 30 PENFILL [Suspect]
     Indication: TYPE 2 DIABETES MELLITUS
     Dosage: UNKNOWN
     Route: 058
     Dates: start: 20100624, end: 20120120
  2. NOVOMIX 30 PENFILL [Suspect]
     Dosage: UNKNOWN
     Route: 058
     Dates: start: 201201, end: 201304

REACTIONS (1)
  - Asthma [Unknown]
